FAERS Safety Report 11783690 (Version 3)
Quarter: 2016Q2

REPORT INFORMATION
  Report Type: Report from Study
  Country: BR (occurrence: BR)
  Receive Date: 20151127
  Receipt Date: 20160629
  Transmission Date: 20160815
  Serious: Yes (Other)
  Sender: FDA-Public Use
  Company Number: PHHY2015BR151639

PATIENT
  Age: 66 Year
  Sex: Female
  Weight: 78 kg

DRUGS (3)
  1. EXELON PATCH [Suspect]
     Active Substance: RIVASTIGMINE
     Dosage: 4.6 MG PATCH 5 (CM2), QD
     Route: 062
     Dates: start: 20151017
  2. EXELON PATCH [Suspect]
     Active Substance: RIVASTIGMINE
     Indication: DEMENTIA ALZHEIMER^S TYPE
     Dosage: 4.6 MG PATCH 5 (CM2), QD
     Route: 062
     Dates: start: 20151017
  3. ZAP//CLONAZEPAM [Concomitant]
     Indication: HYPERTENSION
     Dosage: 25 MG, QD (HALF TABLET OF 50 MG PER DAY), 5 YEARS AGO
     Route: 048

REACTIONS (16)
  - Sleep disorder [Recovered/Resolved]
  - Application site hypoaesthesia [Recovered/Resolved]
  - Cerebrovascular accident [Unknown]
  - Eye pain [Recovered/Resolved]
  - Palpitations [Recovered/Resolved]
  - Amyloidosis [Not Recovered/Not Resolved]
  - Anger [Unknown]
  - Malaise [Recovered/Resolved]
  - Protein total abnormal [Not Recovered/Not Resolved]
  - Irritability [Unknown]
  - Pain [Unknown]
  - Application site reaction [Recovered/Resolved]
  - Speech disorder [Unknown]
  - Hypoaesthesia [Unknown]
  - Alopecia [Not Recovered/Not Resolved]
  - Palpitations [Unknown]

NARRATIVE: CASE EVENT DATE: 20151112
